FAERS Safety Report 11658746 (Version 6)
Quarter: 2016Q1

REPORT INFORMATION
  Report Type: Report from Study
  Country: US (occurrence: US)
  Receive Date: 20151026
  Receipt Date: 20160216
  Transmission Date: 20160525
  Serious: No
  Sender: FDA-Public Use
  Company Number: PHEH2015US021353

PATIENT
  Sex: Male

DRUGS (2)
  1. LOSARTAN. [Concomitant]
     Active Substance: LOSARTAN
     Indication: HYPERTENSION
     Dosage: 50 MG, UNK
     Route: 048
  2. COSENTYX [Suspect]
     Active Substance: SECUKINUMAB
     Indication: PSORIASIS
     Dosage: 300 MG, QMO
     Route: 058
     Dates: start: 201507

REACTIONS (16)
  - Burning sensation [Unknown]
  - Lacrimation increased [Unknown]
  - Scab [Unknown]
  - Skin exfoliation [Recovered/Resolved]
  - Secretion discharge [Recovered/Resolved]
  - Conjunctivitis [Unknown]
  - Hypersensitivity [Unknown]
  - Ocular hyperaemia [Unknown]
  - Pruritus [Unknown]
  - Eye swelling [Recovered/Resolved]
  - Oral mucosal eruption [Unknown]
  - Rash maculo-papular [Recovered/Resolved]
  - Rhinitis [Unknown]
  - Psoriasis [Unknown]
  - Dry skin [Unknown]
  - Rash [Unknown]

NARRATIVE: CASE EVENT DATE: 2015
